FAERS Safety Report 21138840 (Version 6)
Quarter: 2023Q1

REPORT INFORMATION
  Report Type: Spontaneous
  Country: US (occurrence: US)
  Receive Date: 20220727
  Receipt Date: 20230228
  Transmission Date: 20230418
  Serious: Yes (Other)
  Sender: FDA-Public Use
  Company Number: US-PFIZER INC-PV202200031310

PATIENT
  Age: 88 Year
  Sex: Male
  Weight: 90.703 kg

DRUGS (1)
  1. XELJANZ XR [Suspect]
     Active Substance: TOFACITINIB CITRATE
     Dosage: 11 MG, 1X/DAY

REACTIONS (5)
  - Leukaemia [Unknown]
  - Product prescribing error [Unknown]
  - COVID-19 [Unknown]
  - Fatigue [Unknown]
  - White blood cell count decreased [Unknown]

NARRATIVE: CASE EVENT DATE: 20220801
